FAERS Safety Report 22060938 (Version 2)
Quarter: 2023Q1

REPORT INFORMATION
  Report Type: Spontaneous
  Country: US (occurrence: US)
  Receive Date: 20230303
  Receipt Date: 20230323
  Transmission Date: 20230418
  Serious: No
  Sender: FDA-Public Use
  Company Number: US-PFIZER INC-202300086196

PATIENT
  Age: 74 Year
  Sex: Female

DRUGS (16)
  1. IBRANCE [Suspect]
     Active Substance: PALBOCICLIB
     Dosage: TAKE 1 TABLET DAILY FOR 21 DAYS THEN 7 DAYS OFF
     Route: 048
     Dates: start: 20230215
  2. VITAMIN B12 [Concomitant]
     Active Substance: CYANOCOBALAMIN
  3. CALCIUM CARBONATE [Concomitant]
     Active Substance: CALCIUM CARBONATE
  4. LYRICA [Concomitant]
     Active Substance: PREGABALIN
  5. PROPRANOLOL HYDROCHLORIDE [Concomitant]
     Active Substance: PROPRANOLOL HYDROCHLORIDE
  6. VICTOZA [Concomitant]
     Active Substance: LIRAGLUTIDE
     Dosage: 0.6 MG/0.1
  7. FASLODEX [Concomitant]
     Active Substance: FULVESTRANT
     Dosage: 250 MG/5 ML
  8. ZINC [Concomitant]
     Active Substance: ZINC
  9. VITAMIN C [Concomitant]
     Active Substance: ASCORBIC ACID
  10. VITAMIN D3 [Concomitant]
     Active Substance: CHOLECALCIFEROL
  11. PROBIOTIC 10 [BIFIDOBACTERIUM LACTIS;INULIN;LACTOBACILLUS ACIDOPHILUS; [Concomitant]
  12. METHIMAZOLE [Concomitant]
     Active Substance: METHIMAZOLE
  13. THEANINE [Concomitant]
     Active Substance: THEANINE
  14. PREVACID [Concomitant]
     Active Substance: LANSOPRAZOLE
  15. LISINOPRIL [Concomitant]
     Active Substance: LISINOPRIL
  16. BEETROOT [Concomitant]

REACTIONS (2)
  - Asthenia [Unknown]
  - Back pain [Not Recovered/Not Resolved]

NARRATIVE: CASE EVENT DATE: 20230201
